FAERS Safety Report 14685745 (Version 3)
Quarter: 2022Q3

REPORT INFORMATION
  Report Type: Report from Study
  Country: DE (occurrence: DE)
  Receive Date: 20180327
  Receipt Date: 20220721
  Transmission Date: 20221026
  Serious: Yes (Hospitalization, Other)
  Sender: FDA-Public Use
  Company Number: DE-ABBVIE-17K-062-1974136-00

PATIENT
  Age: 82 Year
  Sex: Female
  Weight: 56 kg

DRUGS (31)
  1. EDOXABAN TOSYLATE [Suspect]
     Active Substance: EDOXABAN TOSYLATE
     Indication: Atrial fibrillation
     Dosage: 30 MG, QD
     Route: 065
     Dates: start: 20160930
  2. PANTOPRAZOLE [Suspect]
     Active Substance: PANTOPRAZOLE
     Indication: Product used for unknown indication
     Dosage: 20 MG, QD
     Route: 065
  3. PREDNISOLONE [Suspect]
     Active Substance: PREDNISOLONE
     Indication: Product used for unknown indication
     Dosage: 5 MG
     Route: 065
  4. BISOPROLOL FUMARATE [Suspect]
     Active Substance: BISOPROLOL FUMARATE
     Indication: Product used for unknown indication
     Dosage: 5 MG, QD (0.5 IN 1 DAY)
     Route: 065
     Dates: start: 2016
  5. SIMVASTATIN [Suspect]
     Active Substance: SIMVASTATIN
     Indication: Product used for unknown indication
     Dosage: 40 MG
     Route: 065
  6. XIPAMIDE [Suspect]
     Active Substance: XIPAMIDE
     Indication: Product used for unknown indication
     Dosage: 20 MG
     Route: 065
     Dates: start: 20170124
  7. TORSEMIDE [Suspect]
     Active Substance: TORSEMIDE
     Indication: Product used for unknown indication
     Dosage: 5 MG, QD
     Route: 065
  8. TORSEMIDE [Suspect]
     Active Substance: TORSEMIDE
     Dosage: 45 MG, QD
     Route: 065
     Dates: start: 20170124, end: 20170124
  9. HUMIRA [Suspect]
     Active Substance: ADALIMUMAB
     Indication: Rheumatoid arthritis
     Dosage: 2 UNK, ONCE EVERY 1 WK
     Route: 065
     Dates: start: 20120111, end: 20160927
  10. HUMIRA [Suspect]
     Active Substance: ADALIMUMAB
     Dosage: 2 UNK, ONCE EVERY 1 WK
     Route: 065
     Dates: start: 20161115
  11. CHOLECALCIFEROL [Suspect]
     Active Substance: CHOLECALCIFEROL
     Indication: Product used for unknown indication
     Dosage: 20000 IU, ONCE EVERY 1 WK
     Route: 065
  12. MOVICOL [Suspect]
     Active Substance: POLYETHYLENE GLYCOL 3350\POTASSIUM CHLORIDE\SODIUM BICARBONATE\SODIUM CHLORIDE
     Indication: Product used for unknown indication
     Dosage: UNK
     Route: 065
     Dates: start: 20170124
  13. HYDROCHLOROTHIAZIDE\LOSARTAN POTASSIUM [Suspect]
     Active Substance: HYDROCHLOROTHIAZIDE\LOSARTAN POTASSIUM
     Indication: Product used for unknown indication
     Dosage: 1 DF, QD (100/25 MG)
     Route: 065
     Dates: start: 2016
  14. FUROSEMIDE\SPIRONOLACTONE [Suspect]
     Active Substance: FUROSEMIDE\SPIRONOLACTONE
     Indication: Product used for unknown indication
     Dosage: 1 DF, QD (50MG/20MG)
     Route: 065
     Dates: end: 201610
  15. VALSARTAN [Suspect]
     Active Substance: VALSARTAN
     Indication: Product used for unknown indication
     Dosage: 160 MG
     Route: 065
  16. LACTULOSE [Suspect]
     Active Substance: LACTULOSE
     Indication: Product used for unknown indication
     Dosage: UNK
     Route: 065
     Dates: end: 20170124
  17. METOPROLOL SUCCINATE [Suspect]
     Active Substance: METOPROLOL SUCCINATE
     Indication: Product used for unknown indication
     Dosage: 95 MG
     Route: 065
     Dates: end: 20170124
  18. FENTANYL [Suspect]
     Active Substance: FENTANYL
     Indication: Product used for unknown indication
     Dosage: 75 UG, ONCE EVERY 1HR (75 MICROGRAM/HOUR AND PLASTER CHANGE EVERY 3 DAYS)
     Route: 065
  19. ASPIRIN [Suspect]
     Active Substance: ASPIRIN
     Indication: Product used for unknown indication
     Dosage: 100 MG
     Route: 065
  20. DICLOFENAC SODIUM [Suspect]
     Active Substance: DICLOFENAC SODIUM
     Indication: Product used for unknown indication
     Dosage: 2 UNK, QD
     Route: 065
     Dates: start: 201610, end: 201610
  21. TROSPIUM CHLORIDE [Suspect]
     Active Substance: TROSPIUM CHLORIDE
     Indication: Product used for unknown indication
     Dosage: 45 MG, QD
     Route: 065
     Dates: start: 20170124
  22. TROSPIUM CHLORIDE [Suspect]
     Active Substance: TROSPIUM CHLORIDE
     Dosage: 15 MG, QD
     Route: 065
  23. AMIODARONE HYDROCHLORIDE [Suspect]
     Active Substance: AMIODARONE HYDROCHLORIDE
     Indication: Product used for unknown indication
     Dosage: 200 MG
     Route: 065
  24. CLOPIDOGREL BISULFATE [Suspect]
     Active Substance: CLOPIDOGREL BISULFATE
     Indication: Product used for unknown indication
     Dosage: UNK
     Route: 065
     Dates: end: 20170124
  25. LEVOSIMENDAN [Concomitant]
     Active Substance: LEVOSIMENDAN
     Indication: Product used for unknown indication
     Dosage: FOR 1.5 DAYS
     Route: 065
     Dates: start: 201611, end: 201611
  26. SODIUM CHLORIDE [Concomitant]
     Active Substance: SODIUM CHLORIDE
     Indication: Product used for unknown indication
     Dosage: 1 UNK, QD
     Route: 065
  27. MAGALDRATE [Concomitant]
     Active Substance: MAGALDRATE
     Indication: Product used for unknown indication
     Dosage: 4800 MG, QD
     Route: 065
  28. ENOXAPARIN [Concomitant]
     Active Substance: ENOXAPARIN
     Indication: Product used for unknown indication
     Dosage: DAILY DOSE: 0.6 MG MILLGRAM(S) EVERY DAYS
     Route: 065
  29. NADROPARIN CALCIUM [Concomitant]
     Active Substance: NADROPARIN CALCIUM
     Indication: Product used for unknown indication
     Dosage: 5700 IU INTERNATIONAL UNIT(S) EVERY DAYS
     Route: 058
  30. CORDAREX [Concomitant]
     Active Substance: AMIODARONE
     Indication: Product used for unknown indication
     Dosage: 200 MG, QD
     Route: 065
  31. FOLIC ACID [Concomitant]
     Active Substance: FOLIC ACID
     Indication: Product used for unknown indication
     Dosage: 5 MG
     Route: 065
     Dates: start: 20170124

REACTIONS (54)
  - Hyponatraemia [Unknown]
  - Escherichia infection [Unknown]
  - Aplastic anaemia [Unknown]
  - Hepatic cyst [Unknown]
  - Haemarthrosis [Unknown]
  - Cardiovascular disorder [Unknown]
  - Femoral hernia incarcerated [Recovered/Resolved]
  - Aortic valve stenosis [Unknown]
  - Oedema peripheral [Unknown]
  - Syncope [Unknown]
  - Gastrointestinal haemorrhage [Recovered/Resolved]
  - Joint dislocation [Unknown]
  - Aortic arteriosclerosis [Unknown]
  - Tricuspid valve incompetence [Unknown]
  - Acute kidney injury [Unknown]
  - Anuria [Recovered/Resolved]
  - Dyspepsia [Unknown]
  - Tachyarrhythmia [Unknown]
  - Left ventricular dysfunction [Recovered/Resolved]
  - Wound infection pseudomonas [Unknown]
  - Dyspnoea [Unknown]
  - Cardiogenic shock [Unknown]
  - Osteopenia [Unknown]
  - Wound dehiscence [Recovered/Resolved]
  - Diverticulum intestinal [Unknown]
  - Myelodysplastic syndrome [Unknown]
  - Urinary tract infection [Unknown]
  - Joint dislocation [Recovered/Resolved]
  - Groin pain [Unknown]
  - Faecaloma [Unknown]
  - Gait disturbance [Unknown]
  - Lymphatic fistula [Recovered/Resolved]
  - Hiatus hernia [Unknown]
  - Inflammatory marker increased [Recovered/Resolved]
  - Arterial haemorrhage [Recovered/Resolved]
  - Vomiting [Unknown]
  - Peripheral swelling [Recovered/Resolved]
  - Coronary artery disease [Unknown]
  - Pancreatic steatosis [Unknown]
  - Haematuria [Unknown]
  - Mitral valve incompetence [Unknown]
  - Postoperative wound infection [Recovered/Resolved]
  - Urinary retention [Unknown]
  - Abdominal discomfort [Unknown]
  - Seroma [Unknown]
  - Pulmonary hypertension [Unknown]
  - Anaemia [Recovered/Resolved]
  - Impaired healing [Recovered/Resolved]
  - Hyperkalaemia [Unknown]
  - Arthralgia [Unknown]
  - Decreased appetite [Unknown]
  - General physical health deterioration [Unknown]
  - Eructation [Unknown]
  - Myocardial infarction [Recovered/Resolved]

NARRATIVE: CASE EVENT DATE: 20160301
